FAERS Safety Report 18760523 (Version 1)
Quarter: 2021Q1

REPORT INFORMATION
  Report Type: Spontaneous
  Country: US (occurrence: US)
  Receive Date: 20210119
  Receipt Date: 20210119
  Transmission Date: 20210419
  Serious: No
  Sender: FDA-Public Use
  Company Number: US-ROCHE-2477101

PATIENT
  Sex: Female
  Weight: 46.76 kg

DRUGS (1)
  1. RITUXAN [Suspect]
     Active Substance: RITUXIMAB
     Indication: STILL^S DISEASE
     Dosage: ONGOING: YES
     Route: 042
     Dates: start: 20190709, end: 20191105

REACTIONS (4)
  - Intentional product use issue [Unknown]
  - Dental caries [Unknown]
  - Off label use [Unknown]
  - Tooth fracture [Not Recovered/Not Resolved]
